FAERS Safety Report 8075598-5 (Version None)
Quarter: 2012Q1

REPORT INFORMATION
  Report Type: 
  Country: None (occurrence: None)
  Receive Date: 20120127
  Receipt Date: 20120119
  Transmission Date: 20120608
  Serious: Yes (Other)
  Sender: FDA-Public Use
  Company Number: JP-SANOFI-AVENTIS-2012SA004493

PATIENT

DRUGS (2)
  1. ANTINEOPLASTIC AGENTS [Concomitant]
  2. LASIX [Suspect]
     Route: 065

REACTIONS (1)
  - STOMATITIS [None]
